FAERS Safety Report 6556463-9 (Version None)
Quarter: 2010Q1

REPORT INFORMATION
  Report Type: 
  Country: None (occurrence: None)
  Receive Date: 20100125
  Receipt Date: 20100113
  Transmission Date: 20100710
  Serious: Yes (Death)
  Sender: FDA-Public Use
  Company Number: 475121

PATIENT
  Sex: Male
  Weight: 85 kg

DRUGS (12)
  1. MORPHINE SULFATE [Suspect]
     Indication: DRUG USE FOR UNKNOWN INDICATION
  2. (CITALOPRAM) [Suspect]
     Indication: DRUG USE FOR UNKNOWN INDICATION
  3. DOXEPIN HYDROCHLORIDE [Suspect]
     Indication: DRUG USE FOR UNKNOWN INDICATION
  4. METOPROLOL TARTRATE [Suspect]
     Indication: DRUG USE FOR UNKNOWN INDICATION
  5. DIAZEPAM [Concomitant]
  6. MORPHINE [Concomitant]
  7. PERPHENAZINE [Concomitant]
  8. (SIMVASTATIN-MEPHA) [Concomitant]
  9. TEMAZEPAM [Concomitant]
  10. VASOTEC [Concomitant]
  11. (ZOPICLONE) [Concomitant]
  12. BACLOFEN [Concomitant]

REACTIONS (1)
  - MULTIPLE DRUG OVERDOSE ACCIDENTAL [None]
